FAERS Safety Report 8976494 (Version 2)
Quarter: 2013Q1

REPORT INFORMATION
  Report Type: Other
  Country: US (occurrence: US)
  Receive Date: 20121220
  Receipt Date: 20130131
  Transmission Date: 20140127
  Serious: Yes (Other)
  Sender: FDA-Public Use
  Company Number: US-SHIRE-ALL1-2012-06280

PATIENT
  Age: 16 Year
  Sex: Male

DRUGS (1)
  1. ELAPRASE [Suspect]
     Indication: MUCOPOLYSACCHARIDOSIS II
     Dosage: 0.5 MG/KG, UNKNOWN
     Route: 041

REACTIONS (6)
  - Bronchospasm [Unknown]
  - Oxygen saturation decreased [Unknown]
  - Aspiration [Unknown]
  - Cough [Unknown]
  - Abnormal behaviour [Unknown]
  - Neurological symptom [Unknown]
